FAERS Safety Report 8854755 (Version 1)
Quarter: 2012Q4

REPORT INFORMATION
  Report Type: 
  Country: DE (occurrence: DE)
  Receive Date: 20121023
  Receipt Date: 20121023
  Transmission Date: 20130627
  Serious: Yes (Other)
  Sender: FDA-Public Use
  Company Number: DE-MYLANLABS-2012S1021187

PATIENT
  Age: 18 Year
  Sex: Female
  Weight: 78 kg

DRUGS (1)
  1. DOXEPIN [Suspect]
     Indication: ANXIOLYTIC THERAPY
     Route: 048
     Dates: start: 20121005, end: 20121012

REACTIONS (3)
  - Panic attack [Not Recovered/Not Resolved]
  - Hypoaesthesia [Not Recovered/Not Resolved]
  - Capsule physical issue [Unknown]
